FAERS Safety Report 5127650-1 (Version None)
Quarter: 2006Q4

REPORT INFORMATION
  Report Type: 
  Country: None (occurrence: None)
  Receive Date: 20061011
  Receipt Date: 20060927
  Transmission Date: 20070319
  Serious: Yes (Hospitalization)
  Sender: FDA-Public Use
  Company Number: SPVI-2006-00405

PATIENT
  Age: 17 Year
  Sex: Female

DRUGS (7)
  1. PENTASA [Suspect]
     Indication: COLITIS ULCERATIVE
     Dosage: SEE IMAGE
     Route: 048
     Dates: start: 20050101, end: 20050501
  2. PENTASA [Suspect]
     Indication: COLITIS ULCERATIVE
     Dosage: SEE IMAGE
     Route: 048
     Dates: start: 20050501, end: 20051001
  3. PENTASA [Suspect]
     Indication: COLITIS ULCERATIVE
     Dosage: SEE IMAGE
     Route: 048
     Dates: start: 20051001, end: 20060501
  4. PENTASA [Suspect]
     Indication: COLITIS ULCERATIVE
     Dosage: SEE IMAGE
     Route: 048
     Dates: start: 20060502, end: 20060609
  5. SALAZOPYRIN(SULFASALAZINE) [Suspect]
     Indication: COLITIS ULCERATIVE
     Dosage: 1500 MG DAILY, ORAL
     Route: 048
     Dates: start: 20060502, end: 20060508
  6. RABEPRAZOLE SODIUM [Suspect]
     Indication: ABDOMINAL PAIN UPPER
     Dosage: 10 MG DAILY, ORAL
     Route: 048
     Dates: start: 20060429, end: 20060507
  7. FERROUS CITRATE [Concomitant]

REACTIONS (8)
  - ABDOMINAL PAIN UPPER [None]
  - ANTINEUTROPHIL CYTOPLASMIC ANTIBODY POSITIVE [None]
  - COLITIS ULCERATIVE [None]
  - DISEASE RECURRENCE [None]
  - PULMONARY CAVITATION [None]
  - PULMONARY MASS [None]
  - PYREXIA [None]
  - VERTIGO [None]
